FAERS Safety Report 13362665 (Version 1)
Quarter: 2017Q1

REPORT INFORMATION
  Report Type: Spontaneous
  Country: US (occurrence: US)
  Receive Date: 20170323
  Receipt Date: 20170323
  Transmission Date: 20170429
  Serious: No
  Sender: FDA-Public Use
  Company Number: US-PFIZER INC-2017123859

PATIENT
  Age: 42 Year
  Sex: Male

DRUGS (4)
  1. TORADOL [Suspect]
     Active Substance: KETOROLAC TROMETHAMINE
  2. RISPERDAL [Suspect]
     Active Substance: RISPERIDONE
  3. MORPHINE SULFATE. [Suspect]
     Active Substance: MORPHINE SULFATE
  4. METHADONE [Suspect]
     Active Substance: METHADONE HYDROCHLORIDE

REACTIONS (1)
  - Drug hypersensitivity [Unknown]
